FAERS Safety Report 4486419-1 (Version None)
Quarter: 2004Q4

REPORT INFORMATION
  Report Type: 
  Country: None (occurrence: None)
  Receive Date: 20041027
  Receipt Date: 20041019
  Transmission Date: 20050328
  Serious: Yes (Death, Other)
  Sender: FDA-Public Use
  Company Number: US-BRISTOL-MYERS SQUIBB COMPANY-12743720

PATIENT
  Age: 51 Year

DRUGS (3)
  1. NADOLOL [Suspect]
  2. ALPRAZOLAM [Suspect]
  3. LISINOPRIL AND HYDROCHLOROTHIAZIDE [Suspect]

REACTIONS (2)
  - COMPLETED SUICIDE [None]
  - INTENTIONAL OVERDOSE [None]
